FAERS Safety Report 16244654 (Version 1)
Quarter: 2019Q2

REPORT INFORMATION
  Report Type: Spontaneous
  Country: US (occurrence: US)
  Receive Date: 20190426
  Receipt Date: 20190426
  Transmission Date: 20190711
  Serious: Yes (Other)
  Sender: FDA-Public Use
  Company Number: US-SA-2019SA112984

PATIENT
  Age: 61 Year
  Sex: Female

DRUGS (17)
  1. TURMERIC [CURCUMA LONGA] [Concomitant]
     Dosage: 1 CAP
     Route: 048
     Dates: start: 20190205
  2. AMBIEN [Concomitant]
     Active Substance: ZOLPIDEM TARTRATE
     Dosage: 1 TAB PRN
     Route: 048
     Dates: start: 20180803
  3. MULTIVITAMINS [VITAMINS NOS] [Concomitant]
     Active Substance: VITAMINS
     Dosage: 1 TAB,QD
     Route: 048
     Dates: start: 20180803
  4. DIPHENHYDRAMINE. [Concomitant]
     Active Substance: DIPHENHYDRAMINE
     Indication: ANAPHYLACTIC REACTION
     Dosage: 25 MG, PRN
     Route: 048
     Dates: start: 20180709
  5. FABRAZYME [Suspect]
     Active Substance: AGALSIDASE BETA
     Indication: FABRY^S DISEASE
     Dosage: 60 MG, QOW
     Route: 041
  6. VITAMIN D3 [Concomitant]
     Active Substance: CHOLECALCIFEROL
     Dosage: 1 CAP
     Route: 048
     Dates: start: 20190205
  7. EPINEPHRINE. [Concomitant]
     Active Substance: EPINEPHRINE
     Dosage: 0.3 MG
     Route: 030
     Dates: start: 20180909
  8. FISH OIL OMEGA 3 [Concomitant]
     Active Substance: FISH OIL
     Dosage: 690 MG, QD
     Route: 048
     Dates: start: 20180803
  9. DILTIAZEM. [Concomitant]
     Active Substance: DILTIAZEM
     Dosage: 1 TAB QD
     Route: 048
     Dates: start: 20180803
  10. SODIUM CHLORIDE. [Concomitant]
     Active Substance: SODIUM CHLORIDE
     Dosage: UNK
     Dates: start: 20180709
  11. VITAMIN C [Concomitant]
     Active Substance: ASCORBIC ACID
     Dosage: 1TAB
     Route: 048
     Dates: start: 20180803
  12. XARELTO [Concomitant]
     Active Substance: RIVAROXABAN
     Dosage: 1 TABQD
     Route: 048
     Dates: start: 20180803
  13. GALAFOLD [Concomitant]
     Active Substance: MIGALASTAT HYDROCHLORIDE
     Dosage: 123 MG, QD
     Route: 048
     Dates: start: 20190304
  14. NORMAL SALINE [Concomitant]
     Active Substance: SODIUM CHLORIDE
     Dosage: 0.9%
     Dates: start: 20180709
  15. ACETAMINOPHEN. [Concomitant]
     Active Substance: ACETAMINOPHEN
     Dosage: 650 MG
     Route: 048
     Dates: start: 20180709
  16. STERILE WATER [Concomitant]
     Active Substance: WATER
     Dosage: 1 EACH
     Route: 042
     Dates: start: 20180909
  17. CALCIUM MAGNESIUM [CALCIUM;MAGNESIUM] [Concomitant]
     Dosage: 1 DOSE
     Route: 048
     Dates: start: 20170419

REACTIONS (1)
  - Pneumonia [Unknown]

NARRATIVE: CASE EVENT DATE: 20190414
